FAERS Safety Report 5081094-X (Version None)
Quarter: 2006Q3

REPORT INFORMATION
  Report Type: 
  Country: None (occurrence: None)
  Receive Date: 20060816
  Receipt Date: 20060512
  Transmission Date: 20061208
  Serious: Yes (Death, Life-Threatening, Hospitalization)
  Sender: FDA-Public Use
  Company Number: PHBS2006VE07160

PATIENT
  Age: 73 Year
  Sex: Male

DRUGS (3)
  1. COMBAREN [Suspect]
     Indication: PROCEDURAL PAIN
     Dosage: 1 DF, Q8H
     Route: 048
     Dates: start: 20060509
  2. CEPOTRIL [Concomitant]
     Indication: POSTOPERATIVE CARE
     Route: 048
  3. CEFADROXIL [Concomitant]
     Route: 048

REACTIONS (14)
  - ACUTE MYOCARDIAL INFARCTION [None]
  - ANOREXIA [None]
  - BRAIN HERNIATION [None]
  - BRAIN OEDEMA [None]
  - CARDIO-RESPIRATORY ARREST [None]
  - DECREASED APPETITE [None]
  - DRUG TOXICITY [None]
  - DYSPHAGIA [None]
  - DYSPNOEA [None]
  - HYDROTHORAX [None]
  - HYPOGLYCAEMIA [None]
  - LETHARGY [None]
  - PULMONARY OEDEMA [None]
  - RESPIRATORY RATE DECREASED [None]
